FAERS Safety Report 14895166 (Version 5)
Quarter: 2019Q2

REPORT INFORMATION
  Report Type: Spontaneous
  Country: US (occurrence: US)
  Receive Date: 20180515
  Receipt Date: 20190506
  Transmission Date: 20190711
  Serious: No
  Sender: FDA-Public Use
  Company Number: US-PFIZER INC-2018006502

PATIENT
  Age: 47 Year
  Sex: Female

DRUGS (33)
  1. DOCETAXEL. [Suspect]
     Active Substance: DOCETAXEL
     Indication: INTRADUCTAL PROLIFERATIVE BREAST LESION
     Dosage: UNK, CYCLIC (1ST CYCLE; EVERY 3 WEEKS FOR 6 CYCLES)
     Dates: start: 20140416, end: 20140416
  2. DOCETAXEL ACCORD [Suspect]
     Active Substance: DOCETAXEL
     Indication: INTRADUCTAL PROLIFERATIVE BREAST LESION
     Dosage: UNK, CYCLIC (1ST CYCLE; EVERY 3 WEEKS FOR 6 CYCLES)
     Dates: start: 20140416, end: 20140416
  3. HERCEPTIN [Concomitant]
     Active Substance: TRASTUZUMAB
     Dosage: UNK, CYCLIC
     Dates: start: 20140507, end: 20140507
  4. DEXAMETHASONE. [Concomitant]
     Active Substance: DEXAMETHASONE
     Dosage: UNK
  5. DOCETAXEL ACCORD [Suspect]
     Active Substance: DOCETAXEL
     Dosage: UNK, CYCLIC (6TH CYCLE; EVERY 3 WEEKS FOR 6 CYCLES)
     Dates: start: 20140729, end: 20140729
  6. TAXOL [Concomitant]
     Active Substance: PACLITAXEL
     Indication: CHEMOTHERAPY
     Dosage: UNK
  7. EMEND [Concomitant]
     Active Substance: APREPITANT
     Dosage: UNK
     Route: 042
  8. ALOXI [Concomitant]
     Active Substance: PALONOSETRON HYDROCHLORIDE
     Dosage: UNK
  9. DOCETAXEL ACCORD [Suspect]
     Active Substance: DOCETAXEL
     Dosage: UNK, CYCLIC (2ND CYCLE; EVERY 3 WEEKS FOR 6 CYCLES)
     Dates: start: 20140508, end: 20140508
  10. DOCETAXEL ACCORD [Suspect]
     Active Substance: DOCETAXEL
     Dosage: UNK, CYCLIC (3RD CYCLE; EVERY 3 WEEKS FOR 6 CYCLES)
     Dates: start: 20140527, end: 20140527
  11. HERCEPTIN [Concomitant]
     Active Substance: TRASTUZUMAB
     Indication: CHEMOTHERAPY
     Dosage: UNK, CYCLIC
     Dates: start: 20140416, end: 20140416
  12. PEPCID [Concomitant]
     Active Substance: FAMOTIDINE
     Dosage: UNK
     Route: 042
  13. HERCEPTIN [Concomitant]
     Active Substance: TRASTUZUMAB
     Dosage: UNK, CYCLIC
     Dates: start: 20140729, end: 20140729
  14. PARAPLATIN [Concomitant]
     Active Substance: CARBOPLATIN
     Indication: CHEMOTHERAPY
     Dosage: UNK, CYCLIC
     Dates: start: 20140416, end: 20140416
  15. PARAPLATIN [Concomitant]
     Active Substance: CARBOPLATIN
     Dosage: UNK, CYCLIC
     Dates: start: 20140617, end: 20140617
  16. ONDANSETRON HCL [Concomitant]
     Active Substance: ONDANSETRON HYDROCHLORIDE
     Dosage: UNK
  17. DOCETAXEL. [Suspect]
     Active Substance: DOCETAXEL
     Dosage: UNK, CYCLIC (3RD CYCLE; EVERY 3 WEEKS FOR 6 CYCLES)
     Dates: start: 20140527, end: 20140527
  18. DOCETAXEL. [Suspect]
     Active Substance: DOCETAXEL
     Dosage: UNK, CYCLIC (6TH CYCLE; EVERY 3 WEEKS FOR 6 CYCLES)
     Dates: start: 20140729, end: 20140729
  19. HERCEPTIN [Concomitant]
     Active Substance: TRASTUZUMAB
     Dosage: UNK, CYCLIC
     Dates: start: 20140527, end: 20140527
  20. NEULASTA [Concomitant]
     Active Substance: PEGFILGRASTIM
     Dosage: UNK
  21. DOCETAXEL. [Suspect]
     Active Substance: DOCETAXEL
     Dosage: UNK, CYCLIC (4TH CYCLE; EVERY 3 WEEKS FOR 6 CYCLES)
     Dates: start: 20140617, end: 20140617
  22. DOCETAXEL. [Suspect]
     Active Substance: DOCETAXEL
     Dosage: UNK, CYCLIC (5TH CYCLE; EVERY 3 WEEKS FOR 6 CYCLES)
     Dates: start: 20140709, end: 20140709
  23. DOCETAXEL ACCORD [Suspect]
     Active Substance: DOCETAXEL
     Dosage: UNK, CYCLIC (5TH CYCLE; EVERY 3 WEEKS FOR 6 CYCLES)
     Dates: start: 20140709, end: 20140709
  24. PARAPLATIN [Concomitant]
     Active Substance: CARBOPLATIN
     Dosage: UNK, CYCLIC
     Dates: start: 20140507, end: 20140507
  25. PARAPLATIN [Concomitant]
     Active Substance: CARBOPLATIN
     Dosage: UNK, CYCLIC
     Dates: start: 20140708, end: 20140708
  26. DOCETAXEL. [Suspect]
     Active Substance: DOCETAXEL
     Dosage: UNK, CYCLIC (2ND CYCLE; EVERY 3 WEEKS FOR 6 CYCLES)
     Dates: start: 20140508, end: 20140508
  27. HERCEPTIN [Concomitant]
     Active Substance: TRASTUZUMAB
     Dosage: UNK, CYCLIC
     Dates: start: 20140617, end: 20140617
  28. HERCEPTIN [Concomitant]
     Active Substance: TRASTUZUMAB
     Dosage: UNK, CYCLIC
     Dates: start: 20140708, end: 20140708
  29. PARAPLATIN [Concomitant]
     Active Substance: CARBOPLATIN
     Dosage: UNK, CYCLIC
     Dates: start: 20140527, end: 20140527
  30. MOXIFLOXACIN HCL [Concomitant]
     Active Substance: MOXIFLOXACIN
     Dosage: UNK
  31. ZOFRAN [Concomitant]
     Active Substance: ONDANSETRON HYDROCHLORIDE
     Dosage: UNK
  32. DOCETAXEL ACCORD [Suspect]
     Active Substance: DOCETAXEL
     Dosage: UNK, CYCLIC (4TH CYCLE; EVERY 3 WEEKS FOR 6 CYCLES)
     Dates: start: 20140617, end: 20140617
  33. PARAPLATIN [Concomitant]
     Active Substance: CARBOPLATIN
     Dosage: UNK, CYCLIC
     Dates: start: 20140729, end: 20140729

REACTIONS (5)
  - Madarosis [Not Recovered/Not Resolved]
  - Hair disorder [Not Recovered/Not Resolved]
  - Alopecia [Not Recovered/Not Resolved]
  - Hair colour changes [Not Recovered/Not Resolved]
  - Hair texture abnormal [Not Recovered/Not Resolved]

NARRATIVE: CASE EVENT DATE: 20140507
